FAERS Safety Report 10537402 (Version 1)
Quarter: 2014Q4

REPORT INFORMATION
  Report Type: Spontaneous
  Country: US (occurrence: US)
  Receive Date: 20141023
  Receipt Date: 20141023
  Transmission Date: 20150529
  Serious: No
  Sender: FDA-Public Use
  Company Number: US-BIOGENIDEC-2014BI109422

PATIENT
  Age: 50 Year
  Sex: Male

DRUGS (4)
  1. TECFIDERA [Suspect]
     Active Substance: DIMETHYL FUMARATE
     Indication: MULTIPLE SCLEROSIS
     Route: 048
  2. GARLIC OIL [Concomitant]
     Active Substance: GARLIC OIL
  3. ALLICIN (NOS) [Concomitant]
  4. COLLOIDAL SILVER [Concomitant]
     Active Substance: SILVER

REACTIONS (1)
  - Sinusitis [Recovered/Resolved]
